FAERS Safety Report 17542426 (Version 7)
Quarter: 2020Q2

REPORT INFORMATION
  Report Type: Report from Study
  Country: US (occurrence: US)
  Receive Date: 20200314
  Receipt Date: 20200616
  Transmission Date: 20200713
  Serious: Yes (Hospitalization, Other)
  Sender: FDA-Public Use
  Company Number: US-ACTELION-A-NJ2019-196530

PATIENT
  Sex: Female
  Weight: 50.79 kg

DRUGS (5)
  1. ADCIRCA [Concomitant]
     Active Substance: TADALAFIL
  2. METOPROLOL. [Concomitant]
     Active Substance: METOPROLOL
  3. WARFARIN [Concomitant]
     Active Substance: WARFARIN
  4. OPSUMIT [Suspect]
     Active Substance: MACITENTAN
     Indication: PULMONARY ARTERIAL HYPERTENSION
     Dosage: 10 MG, QD
     Route: 048
     Dates: start: 20180508
  5. REMODULIN [Suspect]
     Active Substance: TREPROSTINIL
     Indication: PRODUCT USED FOR UNKNOWN INDICATION
     Route: 042

REACTIONS (26)
  - Infusion site pain [Unknown]
  - Infusion site erythema [Unknown]
  - Vulvovaginal swelling [Unknown]
  - Dizziness [Unknown]
  - Abdominal distension [Unknown]
  - Hearing aid user [Unknown]
  - Pain in extremity [Unknown]
  - Hospitalisation [Unknown]
  - Arrhythmia [Unknown]
  - Heart rate irregular [Unknown]
  - Nausea [Unknown]
  - Headache [Unknown]
  - Pneumonia [Unknown]
  - Acute respiratory failure [Unknown]
  - Vulvovaginal pain [Unknown]
  - Oedema peripheral [Unknown]
  - Lymphadenopathy [Recovered/Resolved]
  - Infusion site swelling [Unknown]
  - Deafness [Unknown]
  - Pulmonary arterial hypertension [Unknown]
  - Diarrhoea [Unknown]
  - Feeling hot [Unknown]
  - Middle ear effusion [Unknown]
  - Arthralgia [Unknown]
  - Excessive cerumen production [Unknown]
  - Chest tube insertion [Unknown]
